FAERS Safety Report 9869009 (Version 22)
Quarter: 2015Q2

REPORT INFORMATION
  Report Type: Report from Study
  Country: CA (occurrence: GR)
  Receive Date: 20140205
  Receipt Date: 20150414
  Transmission Date: 20150821
  Serious: Yes (Hospitalization)
  Sender: FDA-Public Use
  Company Number: CA-ROCHE-1312089

PATIENT
  Age: 74 Year
  Sex: Female
  Weight: 78 kg

DRUGS (12)
  1. ACTEMRA [Suspect]
     Active Substance: TOCILIZUMAB
     Route: 042
     Dates: start: 20141107, end: 20150210
  2. LYRICA [Concomitant]
     Active Substance: PREGABALIN
  3. TYLENOL [Concomitant]
     Active Substance: ACETAMINOPHEN
     Dosage: AS NECESSARY
     Route: 065
  4. PANTOLOC [Concomitant]
     Active Substance: PANTOPRAZOLE SODIUM
  5. ACTEMRA [Suspect]
     Active Substance: TOCILIZUMAB
     Indication: CHONDROCALCINOSIS PYROPHOSPHATE
     Route: 042
     Dates: start: 20140205
  6. CELEBREX [Concomitant]
     Active Substance: CELECOXIB
     Route: 065
     Dates: end: 201312
  7. PREDNISONE. [Concomitant]
     Active Substance: PREDNISONE
  8. RISEDRONATE [Concomitant]
     Active Substance: RISEDRONATE SODIUM
  9. ACTEMRA [Suspect]
     Active Substance: TOCILIZUMAB
     Indication: RHEUMATOID ARTHRITIS
     Route: 042
     Dates: start: 20131125
  10. COVERSYL [Concomitant]
     Active Substance: PERINDOPRIL
  11. COLCHICINE. [Concomitant]
     Active Substance: COLCHICINE
  12. SALMON OIL [Concomitant]
     Active Substance: FISH OIL

REACTIONS (24)
  - Chest pain [Unknown]
  - Food poisoning [Unknown]
  - Arrhythmia [Recovering/Resolving]
  - Nasopharyngitis [Not Recovered/Not Resolved]
  - Blood pressure increased [Unknown]
  - Musculoskeletal stiffness [Unknown]
  - Burning sensation [Recovered/Resolved]
  - Hypotension [Unknown]
  - Productive cough [Not Recovered/Not Resolved]
  - Asthenia [Unknown]
  - Sciatica [Unknown]
  - Pleural effusion [Recovering/Resolving]
  - Headache [Not Recovered/Not Resolved]
  - Off label use [Unknown]
  - Dyspepsia [Unknown]
  - Breath sounds abnormal [Unknown]
  - Weight increased [Unknown]
  - Anxiety [Unknown]
  - Muscular weakness [Unknown]
  - Erythema [Not Recovered/Not Resolved]
  - Drug ineffective [Unknown]
  - Rash erythematous [Not Recovered/Not Resolved]
  - Pleuritic pain [Unknown]
  - Pyrexia [Not Recovered/Not Resolved]

NARRATIVE: CASE EVENT DATE: 20131223
